FAERS Safety Report 24786134 (Version 2)
Quarter: 2025Q1

REPORT INFORMATION
  Report Type: Spontaneous
  Country: MX (occurrence: MX)
  Receive Date: 20241229
  Receipt Date: 20250103
  Transmission Date: 20250408
  Serious: Yes (Disabling, Other)
  Sender: ROCHE
  Company Number: MX-ROCHE-10000167404

PATIENT
  Age: 41 Year
  Sex: Female
  Weight: 56 kg

DRUGS (3)
  1. OCREVUS [Suspect]
     Active Substance: OCRELIZUMAB
     Indication: Multiple sclerosis
     Route: 042
     Dates: start: 20230423
  2. ESCITALOPRAM [Concomitant]
     Active Substance: ESCITALOPRAM OXALATE
     Indication: Product used for unknown indication
     Route: 065
  3. CARBAMAZEPINE [Concomitant]
     Active Substance: CARBAMAZEPINE
     Indication: Product used for unknown indication
     Route: 065

REACTIONS (10)
  - Muscular weakness [Not Recovered/Not Resolved]
  - Headache [Recovering/Resolving]
  - Electric shock sensation [Recovering/Resolving]
  - Depressed mood [Not Recovered/Not Resolved]
  - Disease progression [Unknown]
  - Joint stiffness [Not Recovered/Not Resolved]
  - Dyskinesia [Unknown]
  - Decreased appetite [Unknown]
  - Weight decreased [Unknown]
  - Fatigue [Unknown]

NARRATIVE: CASE EVENT DATE: 20241224
